FAERS Safety Report 16349803 (Version 6)
Quarter: 2020Q1

REPORT INFORMATION
  Report Type: Spontaneous
  Country: DE (occurrence: DE)
  Receive Date: 20190523
  Receipt Date: 20200318
  Transmission Date: 20200409
  Serious: Yes (Death, Other)
  Sender: FDA-Public Use
  Company Number: PHHY2019DE112819

PATIENT
  Sex: Male
  Weight: 72 kg

DRUGS (40)
  1. GEMCITABINE. [Suspect]
     Active Substance: GEMCITABINE
     Dosage: 2356 MG, UNK
     Route: 065
     Dates: start: 20180921
  2. PANTOPRAZOLE [Concomitant]
     Active Substance: PANTOPRAZOLE
     Indication: PROPHYLAXIS
     Dosage: 40 MG
     Route: 065
  3. DEXAMETHASONE. [Concomitant]
     Active Substance: DEXAMETHASONE
     Dosage: 24 UNK
     Route: 065
     Dates: start: 20180713, end: 20180713
  4. CARBOPLATIN. [Suspect]
     Active Substance: CARBOPLATIN
     Indication: PRODUCT USED FOR UNKNOWN INDICATION
     Dosage: 570 MG
     Route: 065
     Dates: start: 20180713
  5. NIVOLUMAB [Suspect]
     Active Substance: NIVOLUMAB
     Dosage: 3 MG/KG (240MG ABSOLUTE)
     Route: 042
     Dates: start: 20180518, end: 20180629
  6. METOPROLOL SUCCINATE. [Concomitant]
     Active Substance: METOPROLOL SUCCINATE
     Indication: PROPHYLAXIS
     Dosage: 47.5 MILLIGRAM
     Route: 065
  7. PIRETANIDE [Concomitant]
     Active Substance: PIRETANIDE
     Indication: PROPHYLAXIS
     Dosage: 3 MG
     Route: 065
  8. GLUCOSE 5% BRAUN [Concomitant]
     Active Substance: DEXTROSE
     Indication: PRODUCT USED FOR UNKNOWN INDICATION
     Dosage: 500 ML
     Route: 065
     Dates: start: 20180713, end: 20180713
  9. DEXAMETHASONE. [Concomitant]
     Active Substance: DEXAMETHASONE
     Indication: PROPHYLAXIS
     Dosage: 8 MILLIGRAM
     Route: 065
     Dates: start: 20190716
  10. METOCLOPRAMIDE. [Concomitant]
     Active Substance: METOCLOPRAMIDE
     Indication: PRODUCT USED FOR UNKNOWN INDICATION
     Dosage: 1 DF
     Route: 065
     Dates: start: 20180713
  11. CARBOPLATIN. [Suspect]
     Active Substance: CARBOPLATIN
     Dosage: 845 MG
     Route: 065
     Dates: start: 20180803, end: 20180921
  12. GRANISETRON [Concomitant]
     Active Substance: GRANISETRON
     Indication: PROPHYLAXIS
     Dosage: 1 MG, QD
     Route: 065
     Dates: start: 20180713, end: 20180713
  13. SIMVASTATIN. [Concomitant]
     Active Substance: SIMVASTATIN
     Indication: PROPHYLAXIS
     Dosage: 40 MG
     Route: 065
  14. DEXAMETASON [Concomitant]
     Active Substance: DEXAMETHASONE
     Indication: PROPHYLAXIS
     Dosage: 24 MG
     Route: 065
     Dates: start: 20180713, end: 20180713
  15. DEXAMETASON [Concomitant]
     Active Substance: DEXAMETHASONE
     Dosage: 8 MG
     Route: 065
     Dates: start: 20190716
  16. AMPHOTERICIN B. [Concomitant]
     Active Substance: AMPHOTERICIN B
     Indication: PRODUCT USED FOR UNKNOWN INDICATION
     Dosage: 400 MG
     Route: 065
  17. SALUTENSIN [Concomitant]
     Active Substance: HYDROFLUMETHIAZIDE\RESERPINE
     Indication: PRODUCT USED FOR UNKNOWN INDICATION
     Dosage: UNK
     Route: 065
  18. GEMCITABINE. [Suspect]
     Active Substance: GEMCITABINE
     Indication: PRODUCT USED FOR UNKNOWN INDICATION
     Dosage: 234 MG
     Route: 065
     Dates: start: 20180713, end: 20180824
  19. METOCLOPRAMID [Concomitant]
     Active Substance: METOCLOPRAMIDE
     Indication: PRODUCT USED FOR UNKNOWN INDICATION
     Dosage: 1 DF, PRN
     Route: 065
     Dates: start: 20180713
  20. SODIUM CHLORIDE. [Concomitant]
     Active Substance: SODIUM CHLORIDE
     Indication: PRODUCT USED FOR UNKNOWN INDICATION
     Dosage: 350 ML
     Route: 065
     Dates: start: 20180713, end: 20180713
  21. GLUCOSE [Concomitant]
     Active Substance: DEXTROSE
     Indication: PRODUCT USED FOR UNKNOWN INDICATION
     Dosage: 500 ML, QD
     Route: 065
     Dates: start: 20180713, end: 20180713
  22. ATORVASTATIN [Concomitant]
     Active Substance: ATORVASTATIN
     Indication: CARDIOVASCULAR DISORDER
     Dosage: 40 MG
     Route: 065
     Dates: start: 20171101
  23. SULTAMICILLIN TOSILATE [Concomitant]
     Active Substance: SULTAMICILLIN TOSYLATE
     Indication: LUNG DISORDER
     Dosage: 1500 MG
     Route: 065
     Dates: start: 20190823
  24. METOCLOPRAMIDE. [Concomitant]
     Active Substance: METOCLOPRAMIDE
     Dosage: 1 DF
     Route: 065
     Dates: start: 20190713
  25. CARBOPLATIN. [Suspect]
     Active Substance: CARBOPLATIN
     Dosage: 510 MG
     Route: 065
     Dates: start: 20180824
  26. NIVOLUMAB [Suspect]
     Active Substance: NIVOLUMAB
     Dosage: 3 MG/KG (240MG ABSOLUTE)
     Route: 042
     Dates: start: 20190709, end: 20190823
  27. DIGITOXIN [Concomitant]
     Active Substance: DIGITOXIN
     Indication: CARDIOVASCULAR DISORDER
     Dosage: 0.07 MG
     Route: 065
     Dates: start: 20180920
  28. ATORVASTATIN [Concomitant]
     Active Substance: ATORVASTATIN
     Indication: HYPERCHOLESTEROLAEMIA
     Dosage: 40 MG
     Route: 065
     Dates: start: 20190709
  29. METAMIZOL NATRIUM [Concomitant]
     Active Substance: METAMIZOLE SODIUM
     Indication: PRODUCT USED FOR UNKNOWN INDICATION
     Dosage: 2000 MG
     Route: 065
     Dates: start: 20190506
  30. NIVOLUMAB [Suspect]
     Active Substance: NIVOLUMAB
     Indication: NON-SMALL CELL LUNG CANCER METASTATIC
     Dosage: 3 MG/KG, BIW (3 MILLIGRAM/KILOGRAM, Q2WK)
     Route: 042
     Dates: start: 20171212, end: 20180504
  31. DIGITOXIN [Concomitant]
     Active Substance: DIGITOXIN
     Dosage: 0.07 MG
     Route: 065
     Dates: start: 20190506
  32. LISINOPRIL. [Concomitant]
     Active Substance: LISINOPRIL
     Indication: CEREBROVASCULAR DISORDER
     Dosage: 5 MG
     Route: 065
     Dates: start: 20170111
  33. ACETYLSALICYLIC ACID [Concomitant]
     Active Substance: ASPIRIN
     Indication: CARDIOVASCULAR DISORDER
     Dosage: 100 MG
     Route: 065
  34. RIVAROXABAN [Concomitant]
     Active Substance: RIVAROXABAN
     Indication: SUBCLAVIAN ARTERY THROMBOSIS
     Dosage: 20 MG (1 DF IN THE MORNING, SINCE AN UNKNOWN DATE IN 2016 UNTIL DATE OF DEATH)
     Route: 065
     Dates: start: 2016
  35. FOSAPREPITANT [Concomitant]
     Active Substance: FOSAPREPITANT
     Indication: PROPHYLAXIS
     Dosage: 150 MG, QD
     Route: 065
     Dates: start: 20180713, end: 20180713
  36. FENTANYL. [Concomitant]
     Active Substance: FENTANYL
     Indication: PRODUCT USED FOR UNKNOWN INDICATION
     Dosage: 0.16 MG (0.157 MILLIGRAM)
     Route: 065
     Dates: start: 20190506
  37. AMPHOTERICIN B. [Concomitant]
     Active Substance: AMPHOTERICIN B
     Dosage: 400 MG
     Route: 065
     Dates: start: 20190823
  38. CARBOPLATIN. [Suspect]
     Active Substance: CARBOPLATIN
     Dosage: 550 MG
     Route: 065
     Dates: start: 20180921
  39. METOPROLOL SUCCINATE. [Concomitant]
     Active Substance: METOPROLOL SUCCINATE
     Indication: HYPERTENSION
     Dosage: 47.5 MG (95MG, 1 DF IN THE MORNING AND 1/2 DF IN THE EVENING)
     Route: 065
     Dates: start: 20190506
  40. RIVAROXABAN [Concomitant]
     Active Substance: RIVAROXABAN
     Indication: PROPHYLAXIS
     Dosage: 201 MG
     Route: 065

REACTIONS (13)
  - Pneumonia [Recovering/Resolving]
  - Dyspnoea [Not Recovered/Not Resolved]
  - Chest pain [Not Recovered/Not Resolved]
  - Gastric disorder [Recovered/Resolved]
  - Death [Fatal]
  - Malignant neoplasm progression [Not Recovered/Not Resolved]
  - Musculoskeletal pain [Not Recovered/Not Resolved]
  - Vertigo [Not Recovered/Not Resolved]
  - Bacterial infection [Recovering/Resolving]
  - Cough [Not Recovered/Not Resolved]
  - Candida infection [Unknown]
  - Pain [Not Recovered/Not Resolved]
  - Fatigue [Not Recovered/Not Resolved]

NARRATIVE: CASE EVENT DATE: 20180709
